FAERS Safety Report 24131302 (Version 6)
Quarter: 2024Q4

REPORT INFORMATION
  Report Type: Report from Study
  Country: US (occurrence: US)
  Receive Date: 20240724
  Receipt Date: 20241017
  Transmission Date: 20250115
  Serious: Yes (Other)
  Sender: ACADIA PHARMACEUTICALS
  Company Number: US-ACADIA PHARMACEUTICALS INC.-ACA-2024-TRF-003360

PATIENT
  Age: 35 Year
  Sex: Female

DRUGS (17)
  1. DAYBUE [Suspect]
     Active Substance: TROFINETIDE
     Indication: Rett syndrome
     Dosage: 48 MILLILITER, BID
  2. DAYBUE [Suspect]
     Active Substance: TROFINETIDE
     Dosage: 50 MILLILITER, BID
  3. DAYBUE [Suspect]
     Active Substance: TROFINETIDE
     Dosage: 44 MILLILITER, BID
  4. DAYBUE [Suspect]
     Active Substance: TROFINETIDE
     Dosage: 40 MILLILITER, BID
  5. DAYBUE [Suspect]
     Active Substance: TROFINETIDE
     Dosage: 20 MILLILITER, BID
     Dates: start: 20240818
  6. DAYBUE [Suspect]
     Active Substance: TROFINETIDE
     Dosage: 30 MILLILITER, BID
  7. DAYBUE [Suspect]
     Active Substance: TROFINETIDE
     Dosage: 35 MILLILITER, BID
     Dates: start: 20240821
  8. DAYBUE [Suspect]
     Active Substance: TROFINETIDE
     Dosage: 42-44 MILILITER , BID
  9. DAYBUE [Suspect]
     Active Substance: TROFINETIDE
     Dosage: 30 MILLILITER, BID
  10. DAYBUE [Suspect]
     Active Substance: TROFINETIDE
     Dosage: 42 MILLILITER, BID
  11. DAYBUE [Suspect]
     Active Substance: TROFINETIDE
     Dosage: 48 MILLILITER, BID
  12. DAYBUE [Suspect]
     Active Substance: TROFINETIDE
     Dosage: 42 MILLILITER, BID
  13. DAYBUE [Suspect]
     Active Substance: TROFINETIDE
     Dosage: 36 MILLILITER, BID
     Dates: start: 20240923
  14. DAYBUE [Suspect]
     Active Substance: TROFINETIDE
     Dosage: 50 MILLILITER, BID
  15. DAYBUE [Suspect]
     Active Substance: TROFINETIDE
     Dosage: 36 MILLILITER, BID
  16. CLOBAZAM [Suspect]
     Active Substance: CLOBAZAM
     Indication: Seizure
  17. PHENYTOIN [Concomitant]
     Active Substance: PHENYTOIN

REACTIONS (21)
  - Condition aggravated [Not Recovered/Not Resolved]
  - Seizure [Not Recovered/Not Resolved]
  - Seizure [Not Recovered/Not Resolved]
  - Anal incontinence [Not Recovered/Not Resolved]
  - Faeces soft [Not Recovered/Not Resolved]
  - Somnolence [Not Recovered/Not Resolved]
  - Anticonvulsant drug level abnormal [Not Recovered/Not Resolved]
  - Muscular weakness [Not Recovered/Not Resolved]
  - Bacterial infection [Not Recovered/Not Resolved]
  - Constipation [Not Recovered/Not Resolved]
  - Drug ineffective [Not Recovered/Not Resolved]
  - Intermenstrual bleeding [Not Recovered/Not Resolved]
  - Underdose [Not Recovered/Not Resolved]
  - Balance disorder [Not Recovered/Not Resolved]
  - Gait disturbance [Not Recovered/Not Resolved]
  - Muscular weakness [Not Recovered/Not Resolved]
  - Faeces soft [Not Recovered/Not Resolved]
  - Faeces soft [Not Recovered/Not Resolved]
  - Faeces hard [Not Recovered/Not Resolved]
  - Diarrhoea [Recovered/Resolved]
  - Diarrhoea [Not Recovered/Not Resolved]

NARRATIVE: CASE EVENT DATE: 20240801
